FAERS Safety Report 5336418-2 (Version None)
Quarter: 2007Q2

REPORT INFORMATION
  Report Type: 
  Country: None (occurrence: None)
  Receive Date: 20070523
  Receipt Date: 20070514
  Transmission Date: 20071010
  Serious: Yes (Life-Threatening, Hospitalization)
  Sender: FDA-Public Use
  Company Number: CERZ-11492

PATIENT
  Age: 4 Year
  Sex: Female
  Weight: 16 kg

DRUGS (21)
  1. CEREZYME [Suspect]
     Indication: GAUCHER'S DISEASE
     Dosage: 1000 UNITS Q2WKS IV
     Route: 042
     Dates: start: 20030729
  2. CARBOCISTEINE [Concomitant]
  3. SODIUM CROMOGLICATE [Concomitant]
  4. DIAZEPAM [Concomitant]
  5. DANTROLENE SODIUM [Concomitant]
  6. TIZICHLORETHYL HYDROCHLORIDE [Concomitant]
  7. BACLOFEN [Concomitant]
  8. BIFIDOBACTERIUM [Concomitant]
  9. FAMOTIDINE [Concomitant]
  10. PHENOBARBITAL TAB [Concomitant]
  11. MOSAPRIDE CITRATE [Concomitant]
  12. TPN [Concomitant]
  13. SODIUM-POTASSIUM-MAGNESIUM COMBINED DRUG [Concomitant]
  14. BISACODYL [Concomitant]
  15. OFLOXACIN [Concomitant]
  16. BORIC ACID INORGANIC SALTS COMBINED DRUG [Concomitant]
  17. SODIUM HYALURONATE [Concomitant]
  18. SODIUM HYALURONATE [Concomitant]
  19. HEPARINOID [Concomitant]
  20. HYDROCORTISONE BUTYRATE [Concomitant]
  21. TRICHLORETHYL PHOSPHATE SODIUM [Concomitant]

REACTIONS (6)
  - APNOEIC ATTACK [None]
  - CONJUNCTIVITIS ALLERGIC [None]
  - ECZEMA [None]
  - HYPOCALCAEMIA [None]
  - INFECTION [None]
  - RESPIRATORY FAILURE [None]
